FAERS Safety Report 4814063-2 (Version None)
Quarter: 2005Q4

REPORT INFORMATION
  Report Type: 
  Country: None (occurrence: None)
  Receive Date: 20051028
  Receipt Date: 20051024
  Transmission Date: 20060501
  Serious: Yes (Death)
  Sender: FDA-Public Use
  Company Number: 2005GB02056

PATIENT
  Age: 63 Year
  Sex: Male

DRUGS (14)
  1. LISINOPRIL [Suspect]
     Route: 065
  2. ACETAMINOPHEN [Suspect]
     Route: 065
  3. MONTELUKAST [Suspect]
     Route: 065
  4. SPIRIVA [Suspect]
     Indication: CHRONIC OBSTRUCTIVE PULMONARY DISEASE
     Dosage: INHALATION POWDER, HARD CAPSULE
     Route: 065
  5. BUMETANIDE [Suspect]
     Route: 065
  6. HUMALOG [Suspect]
     Route: 065
  7. FOSAMAX [Suspect]
     Route: 065
  8. HUMULIN [Suspect]
     Route: 065
  9. HUMULIN M3 [Suspect]
     Route: 065
  10. NYSTATIN [Suspect]
     Route: 065
  11. SALBUTAMOL [Suspect]
     Route: 055
  12. SERETIDE [Suspect]
     Route: 065
  13. TRAMADOL [Suspect]
     Route: 065
  14. ONE TOUCH ULTRA BIOSENSOR STRIPS [Concomitant]

REACTIONS (1)
  - LOBAR PNEUMONIA [None]
